FAERS Safety Report 7479596-1 (Version None)
Quarter: 2011Q2

REPORT INFORMATION
  Report Type: 
  Country: None (occurrence: None)
  Receive Date: 20110513
  Receipt Date: 20090809
  Transmission Date: 20111010
  Serious: Yes (Hospitalization, Other)
  Sender: FDA-Public Use
  Company Number: US-BAYER-200929363NA

PATIENT
  Age: 55 Year
  Sex: Male
  Weight: 88 kg

DRUGS (25)
  1. TRASYLOL [Suspect]
  2. POTASSIUM CHLORIDE [Concomitant]
     Dosage: 10 MEQ, LONG TERM USE
     Route: 048
  3. ALLOPURINOL [Concomitant]
     Dosage: 100 MG, LONG TERM USE
     Route: 048
  4. LASIX [Concomitant]
     Dosage: 40 MG, LONG TERM USE
     Route: 048
  5. TERAZOSIN HCL [Concomitant]
     Dosage: 5 MG, LONG TERM USE
     Route: 048
  6. GABAPENTIN [Concomitant]
  7. FENTANYL [Concomitant]
     Dosage: UNK
     Dates: start: 20060105
  8. COMBIVENT [Concomitant]
  9. TOPROL-XL [Concomitant]
     Dosage: 100 MG, UNK
     Route: 048
  10. IBUPROFEN [Concomitant]
     Dosage: 800 MG, LONG TERM USE
     Route: 048
  11. ACETYLSALICYLIC ACID SRT [Concomitant]
     Dosage: 81 MG, LONG TERM USE
     Route: 048
  12. CYCLOBENZAPRINE [Concomitant]
     Dosage: 10 MG, LONG TERM USE
     Route: 048
  13. SINGULAIR [Concomitant]
  14. VERSED [Concomitant]
     Dosage: UNK
     Dates: start: 20060105
  15. EPINEPHRINE [Concomitant]
     Dosage: UNK
     Dates: start: 20060105
  16. TRASYLOL [Suspect]
     Dosage: 50 ML/HR INFUSION
     Route: 042
     Dates: start: 20060105, end: 20060105
  17. AVALIDE [Concomitant]
     Dosage: 300/12.5 MG, LONG TERM USE
     Route: 048
  18. TRASYLOL [Suspect]
     Indication: MITRAL VALVE REPLACEMENT
     Dosage: 200 ML LOADING DOSE
     Route: 042
     Dates: start: 20060105, end: 20060105
  19. CARDIZEM [Concomitant]
     Dosage: 360 MG, LONG TERM USE
     Route: 048
  20. METOLAZONE [Concomitant]
     Dosage: 5 MG, LONG TERM USE
     Route: 048
  21. PROPOFOL [Concomitant]
     Dosage: UNK
     Dates: start: 20060105
  22. RED BLOOD CELLS, CONCENTRATED [Concomitant]
     Dosage: 4 U, UNK
     Route: 042
     Dates: start: 20060105, end: 20060105
  23. NORVASC [Concomitant]
  24. TRASYLOL [Suspect]
     Indication: AORTIC VALVE REPLACEMENT
     Dosage: 1 ML, ONCE (INITIAL)
     Route: 042
     Dates: start: 20060105, end: 20060105
  25. HEPARIN [Concomitant]
     Dosage: UNK
     Dates: start: 20060105

REACTIONS (11)
  - ANXIETY [None]
  - FEAR [None]
  - RENAL FAILURE [None]
  - PAIN [None]
  - ANHEDONIA [None]
  - RENAL INJURY [None]
  - STRESS [None]
  - RENAL IMPAIRMENT [None]
  - INJURY [None]
  - UNEVALUABLE EVENT [None]
  - EMOTIONAL DISTRESS [None]
